FAERS Safety Report 8035814-2 (Version None)
Quarter: 2012Q1

REPORT INFORMATION
  Report Type: 
  Country: None (occurrence: None)
  Receive Date: 20120105
  Receipt Date: 20111222
  Transmission Date: 20120608
  Serious: Yes (Hospitalization)
  Sender: FDA-Public Use
  Company Number: B0772428A

PATIENT
  Age: 81 Year
  Sex: Female

DRUGS (4)
  1. FRUSEMIDE UNK [Concomitant]
  2. METFORMIN HYDROCHLORIDE UNK [Concomitant]
  3. DIGOXIN [Suspect]
  4. RAMIPRIL [Suspect]

REACTIONS (7)
  - HYPERKALAEMIA [None]
  - ASTHENIA [None]
  - TOXICITY TO VARIOUS AGENTS [None]
  - DYSPNOEA [None]
  - BLOOD UREA INCREASED [None]
  - BLOOD GLUCOSE INCREASED [None]
  - BLOOD CREATININE INCREASED [None]
